FAERS Safety Report 4801547-6 (Version None)
Quarter: 2005Q4

REPORT INFORMATION
  Report Type: 
  Country: None (occurrence: None)
  Receive Date: 20051011
  Receipt Date: 20050926
  Transmission Date: 20060501
  Serious: Yes (Hospitalization, Other)
  Sender: FDA-Public Use
  Company Number: 2005087134

PATIENT
  Age: 54 Year
  Sex: Female

DRUGS (7)
  1. CELEBREX [Suspect]
     Indication: ARTHRITIS
     Dosage: 200 MG AS NECESSARY, ORAL
     Route: 048
     Dates: start: 19990501, end: 20030801
  2. CELEBREX [Suspect]
     Indication: NEURALGIA
     Dosage: 200 MG AS NECESSARY, ORAL
     Route: 048
     Dates: start: 19990501, end: 20030801
  3. CYCLOBENZAPRINE HYDROCHLORIDE [Concomitant]
  4. ACIPHEX [Concomitant]
  5. ZOLOFT [Concomitant]
  6. ZOCOR [Concomitant]
  7. LIPITOR [Concomitant]

REACTIONS (11)
  - CONDITION AGGRAVATED [None]
  - FALL [None]
  - FRACTURE DELAYED UNION [None]
  - JOINT SPRAIN [None]
  - KNEE ARTHROPLASTY [None]
  - OSTEOARTHRITIS [None]
  - PAIN IN EXTREMITY [None]
  - PHARMACEUTICAL PRODUCT COMPLAINT [None]
  - PULMONARY EMBOLISM [None]
  - RENAL IMPAIRMENT [None]
  - STRESS FRACTURE [None]
